FAERS Safety Report 24763770 (Version 7)
Quarter: 2025Q3

REPORT INFORMATION
  Report Type: Report from Study
  Country: CO (occurrence: CO)
  Receive Date: 20241223
  Receipt Date: 20250904
  Transmission Date: 20251021
  Serious: Yes (Hospitalization, Other)
  Sender: TAKEDA
  Company Number: CO-TAKEDA-2024TUS016185

PATIENT
  Age: 12 Year
  Sex: Female
  Weight: 56 kg

DRUGS (2)
  1. HUMAN IMMUNOGLOBULIN G\HYALURONIDASE RECOMBINANT HUMAN [Suspect]
     Active Substance: HUMAN IMMUNOGLOBULIN G\HYALURONIDASE (HUMAN RECOMBINANT)
     Indication: Primary immunodeficiency syndrome
     Dosage: 50 GRAM, MONTHLY
     Dates: start: 20130204
  2. HUMAN IMMUNOGLOBULIN G\HYALURONIDASE RECOMBINANT HUMAN [Suspect]
     Active Substance: HUMAN IMMUNOGLOBULIN G\HYALURONIDASE (HUMAN RECOMBINANT)
     Dosage: 50 GRAM, MONTHLY
     Dates: start: 20240224

REACTIONS (10)
  - Eye abscess [Unknown]
  - Abscess [Recovering/Resolving]
  - Peritonsillitis [Recovering/Resolving]
  - Oxygen saturation decreased [Recovering/Resolving]
  - Product prescribing error [Unknown]
  - Incorrect dose administered [Unknown]
  - Product availability issue [Unknown]
  - Inappropriate schedule of product administration [Unknown]
  - Weight increased [Unknown]
  - Body height increased [Unknown]

NARRATIVE: CASE EVENT DATE: 20240118
